FAERS Safety Report 6878394-7 (Version None)
Quarter: 2010Q3

REPORT INFORMATION
  Report Type: 
  Country: None (occurrence: None)
  Receive Date: 20100728
  Receipt Date: 20100721
  Transmission Date: 20110219
  Serious: Yes (Other)
  Sender: FDA-Public Use
  Company Number: DE-B.I. PHARMACEUTICALS,INC./RIDGEFIELD-2010-DE-03837DE

PATIENT
  Age: 30 Year
  Sex: Female

DRUGS (2)
  1. MELOXICAM [Suspect]
     Indication: ARTHROPATHY
     Dosage: 15 MG
     Route: 048
     Dates: start: 20100422
  2. CILEST [Suspect]
     Dosage: 1 ANZ

REACTIONS (1)
  - DRUG INTERACTION [None]
